FAERS Safety Report 26152367 (Version 2)
Quarter: 2025Q4

REPORT INFORMATION
  Report Type: Spontaneous
  Country: EU (occurrence: EU)
  Receive Date: 20251214
  Receipt Date: 20251226
  Transmission Date: 20260118
  Serious: Yes (Other)
  Sender: SANOFI AVENTIS
  Company Number: EU-SA-2025SA331416

PATIENT
  Age: 16 Year
  Sex: Female

DRUGS (2)
  1. DUPIXENT [Suspect]
     Active Substance: DUPILUMAB
     Indication: Dermatitis atopic
     Dosage: 300 MG, QOW
     Route: 030
     Dates: start: 20250618
  2. DUPIXENT [Suspect]
     Active Substance: DUPILUMAB
     Indication: Nasal polyps

REACTIONS (12)
  - Anaphylactic reaction [Unknown]
  - Ventricular arrhythmia [Unknown]
  - Dermatitis [Unknown]
  - Skin reaction [Unknown]
  - Paraesthesia [Unknown]
  - Feeling hot [Unknown]
  - Dyspnoea [Unknown]
  - Malaise [Unknown]
  - Vision blurred [Unknown]
  - Headache [Unknown]
  - Mast cell degranulation present [Unknown]
  - Incorrect route of product administration [Unknown]

NARRATIVE: CASE EVENT DATE: 20250101
